FAERS Safety Report 6879273-1 (Version None)
Quarter: 2010Q3

REPORT INFORMATION
  Report Type: 
  Country: None (occurrence: None)
  Receive Date: 20100728
  Receipt Date: 20100114
  Transmission Date: 20110219
  Serious: No
  Sender: FDA-Public Use
  Company Number: US-ABBOTT-10P-163-0620254-00

PATIENT
  Sex: Female
  Weight: 62.652 kg

DRUGS (5)
  1. SYNTHROID [Suspect]
     Indication: THYROIDECTOMY
     Route: 048
     Dates: end: 20100113
  2. SYNTHROID [Suspect]
     Route: 048
     Dates: start: 20100114
  3. SYNTHROID [Suspect]
     Indication: THYROIDECTOMY
     Dates: start: 20100114
  4. CENTRUM [Concomitant]
     Indication: VITAMIN SUPPLEMENTATION
  5. BONIVA [Concomitant]
     Indication: BLOOD CALCIUM DECREASED

REACTIONS (1)
  - THYROID FUNCTION TEST ABNORMAL [None]
